FAERS Safety Report 12909322 (Version 2)
Quarter: 2016Q4

REPORT INFORMATION
  Report Type: Spontaneous
  Country: US (occurrence: US)
  Receive Date: 20161104
  Receipt Date: 20161223
  Transmission Date: 20170207
  Serious: Yes (Death, Other)
  Sender: FDA-Public Use
  Company Number: PHEH2016US028698

PATIENT
  Age: 61 Year
  Sex: Male

DRUGS (7)
  1. MEKINIST [Suspect]
     Active Substance: TRAMETINIB DIMETHYL SULFOXIDE
     Indication: MALIGNANT MELANOMA
     Dosage: 2 MG, QD
     Route: 048
     Dates: start: 20160629
  2. TALIMOGENE LAHERPAREPVEC [Suspect]
     Active Substance: TALIMOGENE LAHERPAREPVEC
     Indication: MALIGNANT MELANOMA
     Route: 065
  3. IPILIMUMAB [Suspect]
     Active Substance: IPILIMUMAB
     Dosage: 4 DF, QW3
     Route: 065
     Dates: start: 20160229
  4. NIVOLUMAB [Suspect]
     Active Substance: NIVOLUMAB
     Indication: MALIGNANT MELANOMA
     Dosage: 4 DF, QW3
     Route: 065
     Dates: start: 20151228
  5. TAFINLAR [Suspect]
     Active Substance: DABRAFENIB MESYLATE
     Indication: MALIGNANT MELANOMA
     Dosage: 150 MG, BID
     Route: 048
     Dates: start: 20160629
  6. IPILIMUMAB [Suspect]
     Active Substance: IPILIMUMAB
     Indication: MALIGNANT MELANOMA
     Dosage: 4 DF, QW3
     Route: 065
     Dates: start: 20151228
  7. NIVOLUMAB [Suspect]
     Active Substance: NIVOLUMAB
     Dosage: 4 DF, QW3
     Route: 065
     Dates: start: 20160229

REACTIONS (14)
  - Malignant melanoma [Fatal]
  - Malignant neoplasm progression [Unknown]
  - Metastases to lung [Unknown]
  - Metastases to bone [Unknown]
  - Metastatic lymphoma [Unknown]
  - Peroneal nerve palsy [Unknown]
  - Visual impairment [Unknown]
  - Lymphadenopathy [Unknown]
  - Pleural effusion [Unknown]
  - Upper limb fracture [Unknown]
  - Pain [Unknown]
  - Neoplasm progression [Unknown]
  - Chest pain [Unknown]
  - Asthenia [Unknown]

NARRATIVE: CASE EVENT DATE: 20161101
